FAERS Safety Report 6255377-1 (Version None)
Quarter: 2009Q3

REPORT INFORMATION
  Report Type: 
  Country: None (occurrence: None)
  Receive Date: 20090702
  Receipt Date: 20090625
  Transmission Date: 20100115
  Serious: Yes (Hospitalization)
  Sender: FDA-Public Use
  Company Number: GB-AMGEN-UK340203

PATIENT
  Sex: Female

DRUGS (10)
  1. NEULASTA [Suspect]
     Indication: LYMPHOMA
     Route: 058
     Dates: start: 20090313, end: 20090313
  2. GEMCITABINE [Concomitant]
     Route: 042
     Dates: start: 20090306, end: 20090306
  3. CYCLOPHOSPHAMIDE [Concomitant]
     Route: 042
     Dates: start: 20090306, end: 20090306
  4. VINCRISTINE [Concomitant]
     Route: 042
     Dates: start: 20090306, end: 20090306
  5. RITUXIMAB [Concomitant]
     Route: 042
     Dates: start: 20090306, end: 20090306
  6. PREDNISOLONE [Concomitant]
     Route: 048
     Dates: start: 20090306, end: 20090310
  7. SIMVASTATIN [Concomitant]
     Route: 048
     Dates: end: 20090311
  8. OMEPRAZOLE [Concomitant]
     Route: 048
  9. METHENAMINE TAB [Concomitant]
     Route: 048
     Dates: end: 20090318
  10. ALLOPURINOL [Concomitant]
     Route: 048
     Dates: start: 20090306

REACTIONS (2)
  - BACK PAIN [None]
  - INFECTION [None]
